FAERS Safety Report 10381316 (Version 1)
Quarter: 2014Q3

REPORT INFORMATION
  Report Type: Spontaneous
  Country: GB (occurrence: None)
  Receive Date: 20140811
  Receipt Date: 20140811
  Transmission Date: 20150326
  Serious: Yes (Other)
  Sender: FDA-Public Use
  Company Number: 2014JUB00072

PATIENT
  Age: 42 Year
  Sex: Male

DRUGS (1)
  1. ESCITALOPRAM [Suspect]
     Active Substance: ESCITALOPRAM OXALATE

REACTIONS (5)
  - Impulsive behaviour [None]
  - Paranoia [None]
  - Anxiety [None]
  - Aggression [None]
  - Alcohol abuse [None]
